FAERS Safety Report 5273339-8 (Version None)
Quarter: 2007Q1

REPORT INFORMATION
  Report Type: 
  Country: None (occurrence: None)
  Receive Date: 20070319
  Receipt Date: 20070306
  Transmission Date: 20070707
  Serious: Yes (Life-Threatening, Other)
  Sender: FDA-Public Use
  Company Number: 2007AL000949

PATIENT
  Age: 77 Year
  Sex: Male

DRUGS (1)
  1. DICLOFENAC SODIUM [Suspect]

REACTIONS (3)
  - ANAPHYLACTIC REACTION [None]
  - CARDIAC ARREST [None]
  - RESPIRATORY ARREST [None]
